FAERS Safety Report 4690533-5 (Version None)
Quarter: 2005Q2

REPORT INFORMATION
  Report Type: 
  Country: None (occurrence: None)
  Receive Date: 20050615
  Receipt Date: 20041026
  Transmission Date: 20051028
  Serious: Yes (Life-Threatening, Hospitalization, Disabling)
  Sender: FDA-Public Use
  Company Number: US-MERCK-0410USA03946

PATIENT
  Age: 71 Year
  Sex: Male
  Weight: 53 kg

DRUGS (14)
  1. VIOXX [Suspect]
     Indication: ARTHRITIS
     Route: 048
     Dates: start: 20030326, end: 20030731
  2. PROTONIX [Concomitant]
     Route: 065
  3. RITE AID COL-RITE STOOL SOFTENER [Concomitant]
     Route: 065
  4. CLONIDINE [Concomitant]
     Route: 065
  5. DIOVAN [Concomitant]
     Route: 065
  6. NORVASC [Concomitant]
     Route: 065
  7. HYDRODIURIL [Concomitant]
     Route: 065
  8. WELLBUTRIN SR [Concomitant]
     Route: 065
  9. COMBIVENT [Concomitant]
     Route: 065
  10. ADVAIR [Concomitant]
     Route: 065
  11. THEOPHYLLINE [Concomitant]
     Route: 065
  12. ASPIRIN [Concomitant]
     Route: 065
  13. BISACODYL [Concomitant]
     Route: 065
  14. METOCLOPRAMIDE [Concomitant]
     Route: 065

REACTIONS (29)
  - ABDOMINAL PAIN [None]
  - ANAEMIA [None]
  - ANOREXIA [None]
  - ANXIETY DISORDER [None]
  - CEREBROVASCULAR ACCIDENT [None]
  - CONSTIPATION [None]
  - CONVULSION [None]
  - COUGH [None]
  - DIVERTICULUM [None]
  - FATIGUE [None]
  - GASTRIC ULCER [None]
  - GASTROOESOPHAGEAL REFLUX DISEASE [None]
  - HELICOBACTER INFECTION [None]
  - HYPERTENSION [None]
  - HYPOTENSION [None]
  - IMPAIRED GASTRIC EMPTYING [None]
  - IRON DEFICIENCY [None]
  - MAJOR DEPRESSION [None]
  - MYOCARDIAL INFARCTION [None]
  - NEPHROSCLEROSIS [None]
  - PROTEINURIA [None]
  - RECTAL POLYP [None]
  - RENAL ARTERY OCCLUSION [None]
  - RENAL ARTERY STENOSIS [None]
  - RENAL ATROPHY [None]
  - RENAL CYST [None]
  - RENAL DISORDER [None]
  - RENAL FAILURE CHRONIC [None]
  - VERTIGO [None]
